FAERS Safety Report 5863031-0 (Version None)
Quarter: 2008Q3

REPORT INFORMATION
  Report Type: 
  Country: None (occurrence: None)
  Receive Date: 20080818
  Receipt Date: 20080620
  Transmission Date: 20090109
  Serious: No
  Sender: FDA-Public Use
  Company Number: WAES 0806USA07984

PATIENT
  Age: 55 Year
  Sex: Female

DRUGS (1)
  1. JANUVIA [Suspect]
     Indication: TYPE 2 DIABETES MELLITUS
     Dosage: 100 MG/DAILY/PO : 50 MG/DAILY/PO
     Route: 048

REACTIONS (6)
  - ASTHENIA [None]
  - COUGH [None]
  - FATIGUE [None]
  - HEADACHE [None]
  - NASAL CONGESTION [None]
  - POSTNASAL DRIP [None]
